FAERS Safety Report 6371424-0 (Version None)
Quarter: 2009Q3

REPORT INFORMATION
  Report Type: 
  Country: None (occurrence: None)
  Receive Date: 20090918
  Receipt Date: 20090918
  Transmission Date: 20100115
  Serious: Yes (Death, Hospitalization)
  Sender: FDA-Public Use
  Company Number: None

PATIENT
  Sex: Male
  Weight: 71.2 kg

DRUGS (2)
  1. CARBOPLATIN [Suspect]
     Dosage: 1266 MG
  2. TAXOL [Suspect]
     Dosage: 486 MG

REACTIONS (1)
  - DEATH [None]
